FAERS Safety Report 8066884-3 (Version None)
Quarter: 2012Q1

REPORT INFORMATION
  Report Type: 
  Country: None (occurrence: None)
  Receive Date: 20120124
  Receipt Date: 20120117
  Transmission Date: 20120608
  Serious: Yes (Other)
  Sender: FDA-Public Use
  Company Number: IT-PFIZER INC-K201101124

PATIENT
  Age: 85 Year
  Sex: Female

DRUGS (1)
  1. ALTACE [Suspect]
     Dosage: UNK
     Route: 048

REACTIONS (5)
  - RASH [None]
  - CUTANEOUS LUPUS ERYTHEMATOSUS [None]
  - SKIN ULCER [None]
  - DERMATITIS BULLOUS [None]
  - LEUKOCYTOCLASTIC VASCULITIS [None]
